FAERS Safety Report 5252576-2 (Version None)
Quarter: 2007Q1

REPORT INFORMATION
  Report Type: 
  Country: None (occurrence: None)
  Receive Date: 20070301
  Receipt Date: 20070222
  Transmission Date: 20070707
  Serious: Yes (Other)
  Sender: FDA-Public Use
  Company Number: CA-BAYER-200711094GDS

PATIENT
  Age: 50 Year
  Sex: Male
  Weight: 133 kg

DRUGS (3)
  1. CIPROFLOXACIN [Suspect]
     Indication: DRUG USE FOR UNKNOWN INDICATION
     Route: 048
  2. AMPICILLIN [Concomitant]
     Indication: UROSEPSIS
     Route: 042
  3. GENTAMICIN [Concomitant]
     Indication: UROSEPSIS
     Route: 042

REACTIONS (2)
  - CUTANEOUS VASCULITIS [None]
  - RENAL VASCULITIS [None]
